FAERS Safety Report 15361849 (Version 1)
Quarter: 2018Q3

REPORT INFORMATION
  Report Type: Spontaneous
  Country: DE (occurrence: DE)
  Receive Date: 20180907
  Receipt Date: 20180907
  Transmission Date: 20181010
  Serious: Yes (Congenital Anomaly, Other)
  Sender: FDA-Public Use
  Company Number: DE-MERCK KGAA-2054722

PATIENT
  Sex: Male

DRUGS (6)
  1. LYNESTRENOL [Suspect]
     Active Substance: LYNESTRENOL
  2. IBUPROFEN. [Suspect]
     Active Substance: IBUPROFEN
  3. PARACETAMOL [Suspect]
     Active Substance: ACETAMINOPHEN
  4. OMEPRAZOLE. [Suspect]
     Active Substance: OMEPRAZOLE
  5. NOVOTHYROX [Suspect]
     Active Substance: LEVOTHYROXINE SODIUM
     Indication: PRODUCT USED FOR UNKNOWN INDICATION
  6. DICLOFENAC [Suspect]
     Active Substance: DICLOFENAC

REACTIONS (7)
  - Splenomegaly [Unknown]
  - Macrocephaly [Unknown]
  - Foetal exposure during pregnancy [Unknown]
  - Pupils unequal [Unknown]
  - Atrial septal defect [Unknown]
  - Pyloric stenosis [Unknown]
  - Cerebral atrophy congenital [Unknown]
